FAERS Safety Report 16030660 (Version 1)
Quarter: 2019Q2

REPORT INFORMATION
  Report Type: Spontaneous
  Country: US (occurrence: US)
  Receive Date: 20190304
  Receipt Date: 20190304
  Transmission Date: 20190711
  Serious: No
  Sender: FDA-Public Use
  Company Number: None

PATIENT
  Age: 50 Year
  Sex: Male

DRUGS (8)
  1. EPLERENONE 50 MG TABLET [Concomitant]
  2. METOPROLOL TARTRATE 100 MG TAB [Concomitant]
  3. CLONIDINE HCL 0.3 MG TABLET [Concomitant]
     Active Substance: CLONIDINE HYDROCHLORIDE
  4. NIFEDIPINE. [Suspect]
     Active Substance: NIFEDIPINE
     Route: 048
  5. HYDRALAZINE 100 MG TABLET [Concomitant]
  6. BENAZEPRIL HCL 40 MG TABLET [Concomitant]
  7. POTASSIUM CL ER 20 MEQ TABET [Concomitant]
  8. FINASTERIDE 5 MG TABLET [Concomitant]

REACTIONS (2)
  - Product substitution issue [None]
  - Blood pressure increased [None]
